FAERS Safety Report 13809534 (Version 2)
Quarter: 2017Q3

REPORT INFORMATION
  Report Type: Report from Study
  Country: DE (occurrence: DE)
  Receive Date: 20170728
  Receipt Date: 20170802
  Transmission Date: 20171127
  Serious: Yes (Death, Hospitalization, Other)
  Sender: FDA-Public Use
  Company Number: DE-BRISTOL-MYERS SQUIBB COMPANY-BMS-2017-067703

PATIENT
  Age: 69 Year
  Sex: Male

DRUGS (4)
  1. NOVAMINSULFON [Concomitant]
     Active Substance: METAMIZOLE
     Indication: MALIGNANT NEOPLASM PROGRESSION
     Dosage: 1 G, UNK
     Route: 065
  2. NIVOLUMAB [Suspect]
     Active Substance: NIVOLUMAB
     Indication: SQUAMOUS CELL CARCINOMA OF HEAD AND NECK
     Dosage: 3 MG/KG, Q2WK
     Route: 042
     Dates: start: 20170601
  3. METAMIZOL                          /06276702/ [Concomitant]
     Active Substance: METAMIZOLE
     Indication: MALIGNANT NEOPLASM PROGRESSION
     Dosage: 100 ML, UNK
     Route: 065
     Dates: start: 20170706
  4. FUROSEMID                          /00032601/ [Concomitant]
     Active Substance: FUROSEMIDE
     Indication: PRODUCT USED FOR UNKNOWN INDICATION
     Dosage: 40 MG, UNK
     Route: 065
     Dates: start: 20170601

REACTIONS (4)
  - Packed red blood cell transfusion [Unknown]
  - Dyspnoea [Fatal]
  - Anaemia [Unknown]
  - Ascites [Fatal]

NARRATIVE: CASE EVENT DATE: 20170601
